FAERS Safety Report 4757725-8 (Version None)
Quarter: 2005Q3

REPORT INFORMATION
  Report Type: 
  Country: None (occurrence: None)
  Receive Date: 20050831
  Receipt Date: 20050825
  Transmission Date: 20060218
  Serious: Yes (Other)
  Sender: FDA-Public Use
  Company Number: PHEH2005US09502

PATIENT
  Age: 62 Year
  Sex: Male

DRUGS (9)
  1. ZOMETA [Suspect]
     Indication: MULTIPLE MYELOMA
     Dosage: IV MONTHLY
     Route: 042
     Dates: start: 20030101, end: 20050501
  2. HYDROCHLOROTHIAZIDE [Concomitant]
     Indication: HYPERKALAEMIA
     Dates: start: 20050825
  3. CCI 779 [Concomitant]
     Dosage: WEEKLY IV DOSE
     Route: 042
  4. ACTOS [Concomitant]
  5. GLYBURIDE [Concomitant]
  6. NEURONTIN [Concomitant]
  7. EFFEXOR [Concomitant]
  8. TRAZODONE [Concomitant]
  9. LOPRESSOR [Concomitant]

REACTIONS (6)
  - ASEPTIC NECROSIS BONE [None]
  - HYPERKALAEMIA [None]
  - TOOTH DISORDER [None]
  - TOOTH LOSS [None]
  - TOOTH REPAIR [None]
  - TOOTHACHE [None]
